FAERS Safety Report 9253672 (Version 6)
Quarter: 2018Q2

REPORT INFORMATION
  Report Type: Report from Study
  Country: DE (occurrence: DE)
  Receive Date: 20130425
  Receipt Date: 20180615
  Transmission Date: 20180711
  Serious: Yes (Life-Threatening, Hospitalization, Other)
  Sender: FDA-Public Use
  Company Number: DE-ROCHE-1215501

PATIENT
  Age: 38 Year
  Sex: Female
  Weight: 65 kg

DRUGS (35)
  1. PEG-INTERFERON ALFA 2A [Suspect]
     Active Substance: PEGINTERFERON ALFA-2A
     Route: 058
     Dates: start: 20131111, end: 20131117
  2. AZITHROMYCIN ANHYDROUS. [Concomitant]
     Active Substance: AZITHROMYCIN ANHYDROUS
     Dosage: LATER 1 PER ONE DAY
     Route: 065
     Dates: start: 20130712, end: 20130714
  3. L THYROXIN BETA [Concomitant]
     Route: 065
     Dates: start: 20131202
  4. BEPANTHEN CREAM (GERMANY) [Concomitant]
     Active Substance: DEXPANTHENOL
     Route: 065
  5. NEO-ANGIN (GERMANY) [Concomitant]
     Route: 065
     Dates: start: 20131118
  6. PEG-INTERFERON ALFA 2A [Suspect]
     Active Substance: PEGINTERFERON ALFA-2A
     Indication: HEPATITIS C
     Route: 058
     Dates: start: 20130415, end: 20131110
  7. AZITHROMYCIN ANHYDROUS. [Concomitant]
     Active Substance: AZITHROMYCIN ANHYDROUS
     Route: 065
     Dates: start: 20130627, end: 20130629
  8. AZITHROMYCIN ANHYDROUS. [Concomitant]
     Active Substance: AZITHROMYCIN ANHYDROUS
     Route: 065
     Dates: start: 20140408, end: 20140410
  9. IBUPROFEN. [Concomitant]
     Active Substance: IBUPROFEN
     Route: 065
  10. BUDESONIDE EASYHALER [Concomitant]
     Active Substance: BUDESONIDE
     Route: 065
     Dates: start: 20140331
  11. RISPERIDON [Concomitant]
     Active Substance: RISPERIDONE
     Route: 065
     Dates: start: 20140401, end: 20140408
  12. AZITHROMYCIN ANHYDROUS. [Concomitant]
     Active Substance: AZITHROMYCIN ANHYDROUS
     Dosage: LATER 1 PER ONE DAY
     Route: 065
     Dates: start: 20141030, end: 20141104
  13. L THYROXIN BETA [Concomitant]
     Route: 065
     Dates: start: 20130617
  14. BETAGALEN [Concomitant]
     Route: 065
     Dates: start: 20130426
  15. L THYROXIN BETA [Concomitant]
     Route: 065
     Dates: start: 20130722, end: 20131202
  16. METAMIZOL [Concomitant]
     Active Substance: METAMIZOLE SODIUM
     Route: 065
     Dates: start: 20130627
  17. RIBAVIRIN. [Suspect]
     Active Substance: RIBAVIRIN
     Indication: HEPATITIS C
     Route: 048
     Dates: start: 20130321, end: 20140317
  18. AMPHO MORONAL [Concomitant]
     Active Substance: AMPHOTERICIN B
     Route: 065
     Dates: start: 20131230
  19. VITAMIN D3 [Concomitant]
     Active Substance: CHOLECALCIFEROL
     Route: 048
     Dates: start: 20130320, end: 20130415
  20. AZITHROMYCIN ANHYDROUS. [Concomitant]
     Active Substance: AZITHROMYCIN ANHYDROUS
     Route: 065
     Dates: start: 20130503, end: 20130505
  21. L THYROXIN BETA [Concomitant]
     Route: 065
     Dates: start: 20130627
  22. UNACID [Concomitant]
     Route: 065
     Dates: start: 20140324, end: 20140328
  23. LOPERAMID [Concomitant]
     Active Substance: LOPERAMIDE
     Route: 065
     Dates: start: 20130603, end: 20130603
  24. AZITHROMYCIN ANHYDROUS. [Concomitant]
     Active Substance: AZITHROMYCIN ANHYDROUS
     Route: 065
     Dates: start: 20130527, end: 20130529
  25. MIRTAZAPIN [Concomitant]
     Active Substance: MIRTAZAPINE
     Route: 065
     Dates: start: 20130402
  26. OMEPRAZOL [Concomitant]
     Active Substance: OMEPRAZOLE
     Route: 065
     Dates: start: 20130503
  27. AMPHO MORONAL [Concomitant]
     Active Substance: AMPHOTERICIN B
     Route: 065
     Dates: start: 20130610
  28. TETRACAINE HYDROCHLORIDE. [Concomitant]
     Active Substance: TETRACAINE HYDROCHLORIDE
     Route: 065
     Dates: start: 20130627
  29. CEFUROXIM [Concomitant]
     Active Substance: CEFUROXIME
     Route: 065
     Dates: start: 20130603, end: 20130609
  30. DEXAMYTREX [Concomitant]
     Active Substance: DEXAMETHASONE SODIUM PHOSPHATE\GENTAMICIN SULFATE
     Route: 065
     Dates: start: 20130712
  31. LOTRIDERM [Concomitant]
     Active Substance: BETAMETHASONE DIPROPIONATE\CLOTRIMAZOLE
     Route: 065
     Dates: start: 20130610
  32. FUCICORT [Concomitant]
     Active Substance: BETAMETHASONE VALERATE\FUSIDIC ACID
     Route: 065
     Dates: start: 20130715
  33. PEG-INTERFERON ALFA 2A [Suspect]
     Active Substance: PEGINTERFERON ALFA-2A
     Route: 058
     Dates: start: 20131118, end: 20140317
  34. VIVINOX [Concomitant]
     Route: 065
     Dates: start: 20130909
  35. L THYROXIN BETA [Concomitant]
     Route: 065
     Dates: start: 20131203

REACTIONS (18)
  - Oropharyngeal pain [Recovered/Resolved]
  - Alanine aminotransferase increased [Not Recovered/Not Resolved]
  - Muscle spasms [Recovered/Resolved]
  - Bulimia nervosa [Recovered/Resolved]
  - Dyspepsia [Recovered/Resolved]
  - Hypersensitivity [Unknown]
  - Circulatory collapse [Unknown]
  - Bulimia nervosa [Not Recovered/Not Resolved]
  - Hypotension [Unknown]
  - Syncope [Unknown]
  - Wound infection [Recovered/Resolved]
  - Abdominal discomfort [Recovered/Resolved]
  - Alcohol abuse [Recovered/Resolved]
  - Drug dependence [Not Recovered/Not Resolved]
  - Muscle spasms [Unknown]
  - Weight decreased [Not Recovered/Not Resolved]
  - Nausea [Unknown]
  - Bradycardia [Not Recovered/Not Resolved]

NARRATIVE: CASE EVENT DATE: 20130415
